FAERS Safety Report 15298168 (Version 1)
Quarter: 2018Q3

REPORT INFORMATION
  Report Type: Spontaneous
  Country: ES (occurrence: ES)
  Receive Date: 20180820
  Receipt Date: 20180820
  Transmission Date: 20181010
  Serious: Yes (Death)
  Sender: FDA-Public Use
  Company Number: ES-ACELLA PHARMACEUTICALS, LLC-2053971

PATIENT
  Age: 23 Year
  Sex: Male

DRUGS (2)
  1. PHENYTOIN SODIUM. [Suspect]
     Active Substance: PHENYTOIN SODIUM
  2. COCAINE HYDROCHLORIDE. [Concomitant]
     Active Substance: COCAINE HYDROCHLORIDE

REACTIONS (2)
  - Pulmonary oedema [Fatal]
  - Death [Fatal]
